FAERS Safety Report 8099836-8 (Version None)
Quarter: 2012Q1

REPORT INFORMATION
  Report Type: 
  Country: None (occurrence: None)
  Receive Date: 20120129
  Receipt Date: 20111010
  Transmission Date: 20120608
  Serious: No
  Sender: FDA-Public Use
  Company Number: US-ABBOTT-11P-163-0862613-00

PATIENT
  Age: 22 Year
  Sex: Female

DRUGS (1)
  1. HUMIRA [Suspect]
     Indication: PSORIASIS
     Dates: start: 20110501

REACTIONS (5)
  - INCREASED UPPER AIRWAY SECRETION [None]
  - BACK PAIN [None]
  - CHEST DISCOMFORT [None]
  - WHEEZING [None]
  - COUGH [None]
